FAERS Safety Report 4947321-1 (Version None)
Quarter: 2006Q1

REPORT INFORMATION
  Report Type: 
  Country: None (occurrence: None)
  Receive Date: 20060317
  Receipt Date: 20060315
  Transmission Date: 20060701
  Serious: Yes (Life-Threatening, Hospitalization)
  Sender: FDA-Public Use
  Company Number: DE-BOEHRINGER INGELHEIM PHARMACEUTICALS, INC.-2006-DE-01406DE

PATIENT
  Sex: Female

DRUGS (3)
  1. AGGRENOX [Suspect]
     Indication: TRANSIENT ISCHAEMIC ATTACK
     Dates: start: 20060101
  2. LISINOPRIL [Concomitant]
     Indication: HYPERTENSION
     Dates: start: 20050401
  3. PRAVASIN [Concomitant]
     Indication: HYPERLIPIDAEMIA
     Dates: start: 20060101

REACTIONS (3)
  - GASTRIC ULCER PERFORATION [None]
  - PENETRATING ABDOMINAL TRAUMA [None]
  - PERITONITIS [None]
